FAERS Safety Report 19101202 (Version 1)
Quarter: 2021Q2

REPORT INFORMATION
  Report Type: Spontaneous
  Country: CA (occurrence: CA)
  Receive Date: 20210407
  Receipt Date: 20210407
  Transmission Date: 20210717
  Serious: Yes (Other)
  Sender: FDA-Public Use
  Company Number: CA-SUN PHARMACEUTICAL INDUSTRIES LTD-2021R1-277123

PATIENT
  Age: 42 Year
  Sex: Male

DRUGS (3)
  1. ALLOPURINOL. [Suspect]
     Active Substance: ALLOPURINOL
     Indication: GOUT
     Dosage: UNK
     Route: 065
  2. BUPROPION. [Suspect]
     Active Substance: BUPROPION
     Indication: GOUT
     Dosage: UNK
     Route: 065
  3. FEBUXOSTAT. [Suspect]
     Active Substance: FEBUXOSTAT
     Indication: GOUT
     Dosage: UNK
     Route: 065

REACTIONS (2)
  - Hypersensitivity [Unknown]
  - Dermatitis exfoliative [Recovered/Resolved]
